FAERS Safety Report 24111264 (Version 1)
Quarter: 2024Q3

REPORT INFORMATION
  Report Type: Spontaneous
  Country: US (occurrence: None)
  Receive Date: 20240718
  Receipt Date: 20240718
  Transmission Date: 20241017
  Serious: No
  Sender: Public
  Company Number: None

PATIENT
  Age: 76 Year
  Sex: Female

DRUGS (1)
  1. OPSUMIT [Suspect]
     Active Substance: MACITENTAN
     Indication: Pulmonary arterial hypertension
     Dosage: FREQUENCY : DAILY;?
     Route: 048
     Dates: start: 20230213, end: 20240611

REACTIONS (5)
  - Nausea [None]
  - Weight increased [None]
  - Fluid retention [None]
  - Fatigue [None]
  - Peripheral swelling [None]

NARRATIVE: CASE EVENT DATE: 20240611
